FAERS Safety Report 25599137 (Version 1)
Quarter: 2025Q3

REPORT INFORMATION
  Report Type: Spontaneous
  Country: AU (occurrence: AU)
  Receive Date: 20250724
  Receipt Date: 20250724
  Transmission Date: 20251021
  Serious: Yes (Other)
  Sender: CELLTRION
  Company Number: AU-CELLTRION INC.-2025AU024068

PATIENT

DRUGS (1)
  1. INFLIXIMAB [Suspect]
     Active Substance: INFLIXIMAB
     Indication: Product used for unknown indication
     Dosage: 120 MG, FORTNIGHTLY
     Route: 058
     Dates: start: 20230328, end: 20250709

REACTIONS (2)
  - Liver transplant [Unknown]
  - Intentional dose omission [Unknown]

NARRATIVE: CASE EVENT DATE: 20231109
